FAERS Safety Report 8767825 (Version 1)
Quarter: 2012Q4

REPORT INFORMATION
  Report Type: 
  Country: IT (occurrence: IT)
  Receive Date: 20120904
  Receipt Date: 20120904
  Transmission Date: 20130627
  Serious: Yes (Hospitalization)
  Sender: FDA-Public Use
  Company Number: PHHY2012IT075765

PATIENT
  Age: 62 Year
  Sex: Female

DRUGS (2)
  1. CEFTRIAXONE [Suspect]
     Indication: BACTERIAL INFECTION
     Dosage: 1 g
     Route: 030
     Dates: start: 20120626
  2. VENTOLIN [Concomitant]
     Dosage: 100 ug

REACTIONS (5)
  - Cardio-respiratory arrest [Not Recovered/Not Resolved]
  - Anoxia [Not Recovered/Not Resolved]
  - Anaphylactic shock [Not Recovered/Not Resolved]
  - Blood glucose increased [Unknown]
  - Activated partial thromboplastin time prolonged [Unknown]
